FAERS Safety Report 9698940 (Version 1)
Quarter: 2013Q4

REPORT INFORMATION
  Report Type: Spontaneous
  Country: US (occurrence: US)
  Receive Date: 20131120
  Receipt Date: 20131120
  Transmission Date: 20140711
  Serious: Yes (Other)
  Sender: FDA-Public Use
  Company Number: US-PFIZER INC-2013327564

PATIENT
  Age: 82 Year
  Sex: Male
  Weight: 70.3 kg

DRUGS (2)
  1. VIAGRA [Suspect]
     Indication: ERECTILE DYSFUNCTION
     Dosage: 100 MG, AS NEEDED
     Route: 048
  2. TYLENOL [Concomitant]
     Dosage: UNK

REACTIONS (4)
  - Alcohol interaction [Unknown]
  - Transient global amnesia [Unknown]
  - Confusional state [Unknown]
  - Ejaculation disorder [Unknown]
